FAERS Safety Report 15468639 (Version 1)
Quarter: 2018Q4

REPORT INFORMATION
  Report Type: Spontaneous
  Country: US (occurrence: US)
  Receive Date: 20181005
  Receipt Date: 20181005
  Transmission Date: 20190204
  Serious: No
  Sender: FDA-Public Use
  Company Number: US-009507513-1809USA007976

PATIENT
  Age: 66 Year
  Sex: Female

DRUGS (2)
  1. ASMANEX [Suspect]
     Active Substance: MOMETASONE FUROATE
     Indication: ASTHMA
     Dosage: 20 MCG 1 PUFF TWICE DAILY
     Route: 055
     Dates: start: 20180914
  2. FLONASE [Concomitant]
     Active Substance: FLUTICASONE PROPIONATE
     Dosage: UNK

REACTIONS (7)
  - Dyspnoea [Unknown]
  - Malaise [Unknown]
  - Sleep disorder [Unknown]
  - Product quality issue [Unknown]
  - Feeling abnormal [Unknown]
  - Product dose omission [Unknown]
  - Headache [Unknown]

NARRATIVE: CASE EVENT DATE: 20180914
